FAERS Safety Report 5100391-2 (Version None)
Quarter: 2006Q3

REPORT INFORMATION
  Report Type: 
  Country: None (occurrence: None)
  Receive Date: 20060731
  Receipt Date: 20060523
  Transmission Date: 20061208
  Serious: No
  Sender: FDA-Public Use
  Company Number: 2006PV014360

PATIENT
  Age: 70 Year
  Sex: Female

DRUGS (9)
  1. BYETTA [Suspect]
     Indication: DIABETES MELLITUS NON-INSULIN-DEPENDENT
     Dosage: 5 MCG; BID; SC
     Route: 058
     Dates: start: 20060426
  2. METFORMIN HCL [Concomitant]
  3. AVANDIA [Concomitant]
  4. GLYBURIDE [Concomitant]
  5. ALTACE [Concomitant]
  6. LEVOTHYROXINE SODIUM [Concomitant]
  7. TOPROL-XL [Concomitant]
  8. CLONIDINE [Concomitant]
  9. LIPITOR [Concomitant]

REACTIONS (2)
  - BLOOD GLUCOSE INCREASED [None]
  - WEIGHT DECREASED [None]
